FAERS Safety Report 5417797-4 (Version None)
Quarter: 2007Q3

REPORT INFORMATION
  Report Type: 
  Country: None (occurrence: None)
  Receive Date: 20070815
  Receipt Date: 20070507
  Transmission Date: 20080115
  Serious: Yes (Death, Other)
  Sender: FDA-Public Use
  Company Number: 163-21880-07031614

PATIENT
  Age: 57 Year
  Sex: Female

DRUGS (4)
  1. REVLIMID [Suspect]
     Indication: MULTIPLE MYELOMA
     Dosage: 10 MG, 1 IN 1 D, ORAL
     Route: 048
     Dates: start: 20060921, end: 20061101
  2. ANZEMET [Concomitant]
  3. LACTULOSE [Concomitant]
  4. LORAZEPAM [Concomitant]

REACTIONS (1)
  - THROMBOCYTOPENIA [None]
